FAERS Safety Report 9279607 (Version 1)
Quarter: 2013Q2

REPORT INFORMATION
  Report Type: Spontaneous
  Country: IT (occurrence: IT)
  Receive Date: 20130509
  Receipt Date: 20130509
  Transmission Date: 20140414
  Serious: Yes (Hospitalization, Other)
  Sender: FDA-Public Use
  Company Number: IT-PAR PHARMACEUTICAL, INC-2013SCPR005901

PATIENT
  Sex: 0

DRUGS (4)
  1. CABERGOLINE [Suspect]
     Indication: LACTATION INHIBITION THERAPY
     Dosage: 1 MG, UNKNOWN
     Route: 048
  2. KETOROLAC [Suspect]
     Indication: HEADACHE
     Dosage: UNK, UNKNOWN
     Route: 065
  3. BUDESONIDE [Concomitant]
     Indication: ASTHMA
     Dosage: 800 ?G, QD
     Route: 045
  4. FORMOTEROL [Concomitant]
     Indication: ASTHMA
     Dosage: 24 ?G, QD
     Route: 045

REACTIONS (5)
  - Kounis syndrome [Recovered/Resolved]
  - Cardiac arrest [Recovered/Resolved]
  - Cardiogenic shock [Recovered/Resolved]
  - Ventricular arrhythmia [Recovered/Resolved]
  - Pulmonary oedema [Recovered/Resolved]
